FAERS Safety Report 17078875 (Version 1)
Quarter: 2019Q4

REPORT INFORMATION
  Report Type: Spontaneous
  Country: US (occurrence: US)
  Receive Date: 20191127
  Receipt Date: 20191127
  Transmission Date: 20200122
  Serious: No
  Sender: FDA-Public Use
  Company Number: US-AUROBINDO-AUR-APL-2019-055533

PATIENT
  Age: 64 Year
  Sex: Male
  Weight: 91 kg

DRUGS (4)
  1. LISINOPRIL. [Suspect]
     Active Substance: LISINOPRIL
     Indication: BLOOD PRESSURE FLUCTUATION
     Dosage: UNK
     Route: 065
  2. PAXIL [Concomitant]
     Active Substance: PAROXETINE HYDROCHLORIDE
     Indication: PRODUCT USED FOR UNKNOWN INDICATION
     Dosage: UNK
     Route: 065
  3. LOSARTAN TABLETS [Suspect]
     Active Substance: LOSARTAN
     Dosage: 40 MILLIGRAM, (DOSE INCREASED TO 40 MG)
     Route: 065
  4. LOSARTAN TABLETS [Suspect]
     Active Substance: LOSARTAN
     Indication: HYPERTENSION
     Dosage: 20 MILLIGRAM, ONCE A DAY, 1 TABLET PER DAY, 2 PILLS DOSES FOR 1 + 1/2 WEEKS
     Route: 065

REACTIONS (4)
  - Therapeutic product effect incomplete [Unknown]
  - Blood pressure fluctuation [Not Recovered/Not Resolved]
  - Dizziness [Recovering/Resolving]
  - Product substitution issue [Unknown]
